FAERS Safety Report 23024324 (Version 4)
Quarter: 2023Q4

REPORT INFORMATION
  Report Type: Report from Study
  Country: CA (occurrence: CA)
  Receive Date: 20231004
  Receipt Date: 20231127
  Transmission Date: 20240110
  Serious: Yes (Other)
  Sender: FDA-Public Use
  Company Number: CA-JNJFOC-20221235006

PATIENT
  Age: 24 Year
  Sex: Female
  Weight: 67 kg

DRUGS (2)
  1. REMICADE [Suspect]
     Active Substance: INFLIXIMAB
     Indication: Colitis ulcerative
     Dosage: THE PATIENT UNABLE TO ATTEND 13-DEC-2022 INFUSION AND REBOOKED TO 22-DEC-2022. ON 11-JAN-2023, THE P
     Route: 041
     Dates: start: 20150603
  2. REMICADE [Suspect]
     Active Substance: INFLIXIMAB
     Dosage: DOSE CHANGED TO 10 MG/KG (700 MG - VIAL ROUNDED UP)
     Route: 041

REACTIONS (12)
  - Ovarian cyst ruptured [Recovering/Resolving]
  - Colitis ulcerative [Unknown]
  - Exposure during pregnancy [Not Recovered/Not Resolved]
  - Influenza [Unknown]
  - Drug level abnormal [Unknown]
  - Malaise [Unknown]
  - General physical health deterioration [Recovering/Resolving]
  - Nasopharyngitis [Unknown]
  - Arthralgia [Unknown]
  - Cystitis [Unknown]
  - Product dose omission issue [Unknown]
  - Off label use [Unknown]

NARRATIVE: CASE EVENT DATE: 20230110
